FAERS Safety Report 9885584 (Version 2)
Quarter: 2014Q1

REPORT INFORMATION
  Report Type: Spontaneous
  Country: US (occurrence: US)
  Receive Date: 20140210
  Receipt Date: 20140210
  Transmission Date: 20141002
  Serious: Yes (Other)
  Sender: FDA-Public Use
  Company Number: US-GILEAD-2011-0039753

PATIENT
  Age: 50 Year
  Sex: Male

DRUGS (2)
  1. VIREAD [Suspect]
     Indication: HIV INFECTION
     Dates: start: 2000
  2. COMBIVIR [Concomitant]
     Indication: HIV INFECTION
     Dates: start: 2000

REACTIONS (2)
  - Hepatitis B DNA increased [Unknown]
  - Platelet count decreased [Unknown]
